FAERS Safety Report 6265263-9 (Version None)
Quarter: 2009Q3

REPORT INFORMATION
  Report Type: 
  Country: None (occurrence: None)
  Receive Date: 20090709
  Receipt Date: 20090709
  Transmission Date: 20100115
  Serious: Yes (Hospitalization)
  Sender: FDA-Public Use
  Company Number: None

PATIENT
  Age: 52 Year
  Sex: Male
  Weight: 240 kg

DRUGS (1)
  1. SORAFENIB [Suspect]
     Indication: METASTASES TO CENTRAL NERVOUS SYSTEM
     Dosage: 3/23-5/9/2008
     Dates: start: 20090320, end: 20090409

REACTIONS (1)
  - GASTROOESOPHAGEAL REFLUX DISEASE [None]
